FAERS Safety Report 12780483 (Version 2)
Quarter: 2017Q1

REPORT INFORMATION
  Report Type: Report from Study
  Country: CN (occurrence: CN)
  Receive Date: 20160926
  Receipt Date: 20170228
  Transmission Date: 20170428
  Serious: Yes (Hospitalization)
  Sender: FDA-Public Use
  Company Number: CN-IPSEN BIOPHARMACEUTICALS, INC.-2016-07686

PATIENT
  Age: 56 Year
  Sex: Female
  Weight: 73 kg

DRUGS (1)
  1. SOMATULINE 40MG [Suspect]
     Active Substance: LANREOTIDE ACETATE
     Indication: ACROMEGALY
     Dosage: 40 MG
     Route: 065

REACTIONS (1)
  - Chronic gastritis [Recovered/Resolved]

NARRATIVE: CASE EVENT DATE: 20160906
